FAERS Safety Report 5078822-6 (Version None)
Quarter: 2006Q3

REPORT INFORMATION
  Report Type: 
  Country: None (occurrence: None)
  Receive Date: 20060814
  Receipt Date: 20060803
  Transmission Date: 20061208
  Serious: Yes (Hospitalization)
  Sender: FDA-Public Use
  Company Number: FR-ABBOTT-06P-056-0339511-00

PATIENT
  Age: 86 Year
  Sex: Female

DRUGS (2)
  1. VERCYTE [Suspect]
     Indication: ESSENTIAL THROMBOCYTHAEMIA
     Route: 048
     Dates: start: 20060415
  2. HYDROXYCARBAMIDE [Suspect]
     Indication: THROMBOCYTOPENIA
     Route: 048
     Dates: end: 20060415

REACTIONS (1)
  - VARICOSE ULCERATION [None]
